FAERS Safety Report 8603986-4 (Version None)
Quarter: 2012Q3

REPORT INFORMATION
  Report Type: 
  Country: None (occurrence: None)
  Receive Date: 20120820
  Receipt Date: 20120810
  Transmission Date: 20120928
  Serious: No
  Sender: FDA-Public Use
  Company Number: US-BIOGENIDEC-2011BI025102

PATIENT
  Age: 46 Year
  Sex: Male

DRUGS (3)
  1. AVONEX [Concomitant]
     Indication: MULTIPLE SCLEROSIS
     Route: 030
     Dates: start: 20110830
  2. TYSABRI [Suspect]
     Route: 042
     Dates: start: 20120529, end: 20120810
  3. TYSABRI [Suspect]
     Indication: MULTIPLE SCLEROSIS
     Route: 042
     Dates: start: 20100330, end: 20110801

REACTIONS (5)
  - BLISTER [None]
  - FURUNCLE [None]
  - MEMORY IMPAIRMENT [None]
  - FATIGUE [None]
  - SCAB [None]
